FAERS Safety Report 7741163-X (Version None)
Quarter: 2011Q3

REPORT INFORMATION
  Report Type: 
  Country: None (occurrence: None)
  Receive Date: 20110909
  Receipt Date: 20110905
  Transmission Date: 20111222
  Serious: Yes (Disabling, Other)
  Sender: FDA-Public Use
  Company Number: DE-BAYER-2011-065193

PATIENT

DRUGS (1)
  1. ULTRAVIST 150 [Suspect]
     Indication: SCAN
     Dosage: 2.5 ML, ONCE
     Route: 037

REACTIONS (5)
  - PARAPLEGIA [None]
  - SPINAL CORD INJURY [None]
  - NEUROLOGICAL SYMPTOM [None]
  - BONE MARROW DISORDER [None]
  - INFLAMMATION [None]
